FAERS Safety Report 6579838-0 (Version None)
Quarter: 2010Q1

REPORT INFORMATION
  Report Type: 
  Country: None (occurrence: None)
  Receive Date: 20100209
  Receipt Date: 20100209
  Transmission Date: 20100710
  Serious: Yes (Hospitalization, Other)
  Sender: FDA-Public Use
  Company Number: None

PATIENT
  Age: 63 Year
  Sex: Female
  Weight: 51 kg

DRUGS (1)
  1. FOLLITRAX [Suspect]

REACTIONS (1)
  - PULMONARY FIBROSIS [None]
